FAERS Safety Report 6260513-7 (Version None)
Quarter: 2009Q3

REPORT INFORMATION
  Report Type: 
  Country: None (occurrence: None)
  Receive Date: 20090708
  Receipt Date: 20080610
  Transmission Date: 20100115
  Serious: Yes (Other)
  Sender: FDA-Public Use
  Company Number: US-BRISTOL-MYERS SQUIBB COMPANY-14227961

PATIENT
  Sex: Female

DRUGS (11)
  1. SINEMET CR [Suspect]
     Indication: RESTLESS LEGS SYNDROME
     Dosage: 25-100 MG/HS. FORM - TAB.
     Route: 048
     Dates: start: 20060622, end: 20060625
  2. ALBUTEROL [Concomitant]
  3. ALPRAZOLAM [Concomitant]
  4. CLONIDINE [Concomitant]
  5. PREMPRO/PREMPHASE [Concomitant]
  6. GABAPENTIN [Concomitant]
  7. LISINOPRIL [Concomitant]
  8. METOPROLOL SUCCINATE [Concomitant]
  9. PHENYTOIN [Concomitant]
  10. SERTRALINE HCL [Concomitant]
  11. TRIAMCINOLONE ACETONIDE [Concomitant]

REACTIONS (4)
  - BLOOD PRESSURE INCREASED [None]
  - HEART RATE INCREASED [None]
  - MUSCLE SPASMS [None]
  - TREMOR [None]
